FAERS Safety Report 6202131-2 (Version None)
Quarter: 2009Q2

REPORT INFORMATION
  Report Type: 
  Country: None (occurrence: None)
  Receive Date: 20090520
  Receipt Date: 20090506
  Transmission Date: 20091009
  Serious: Yes (Death, Hospitalization)
  Sender: FDA-Public Use
  Company Number: CERZ-1000635

PATIENT
  Age: 75 Year
  Sex: Male
  Weight: 63.6 kg

DRUGS (1)
  1. CEREZYME [Suspect]
     Indication: GAUCHER'S DISEASE
     Dosage: 5000 U, Q2W, INTRAVENOUS
     Route: 042
     Dates: start: 20060522, end: 20090427

REACTIONS (3)
  - GASTROINTESTINAL HAEMORRHAGE [None]
  - MULTI-ORGAN FAILURE [None]
  - SEPSIS [None]
